FAERS Safety Report 22209312 (Version 3)
Quarter: 2023Q2

REPORT INFORMATION
  Report Type: Spontaneous
  Country: US (occurrence: US)
  Receive Date: 20230413
  Receipt Date: 20230510
  Transmission Date: 20230722
  Serious: Yes (Hospitalization)
  Sender: FDA-Public Use
  Company Number: US-009507513-2304USA003055

PATIENT
  Age: 82 Year
  Sex: Male

DRUGS (23)
  1. KEYTRUDA [Suspect]
     Active Substance: PEMBROLIZUMAB
     Indication: Non-small cell lung cancer
     Dosage: 200 MILLIGRAM, Q3W
     Dates: start: 20230209
  2. ONC-392 [Suspect]
     Active Substance: ONC-392
     Indication: Non-small cell lung cancer
     Dosage: 3 MILLIGRAM/KILOGRAM, Q3W
     Route: 042
     Dates: start: 20230209
  3. TYLENOL [Concomitant]
     Active Substance: ACETAMINOPHEN
  4. MIRALAX [Concomitant]
     Active Substance: POLYETHYLENE GLYCOL 3350
  5. ASPIRIN [Concomitant]
     Active Substance: ASPIRIN
  6. TRAMADOL [Concomitant]
     Active Substance: TRAMADOL
  7. ALBUTEROL [Concomitant]
     Active Substance: ALBUTEROL
  8. BUDESONIDE\FORMOTEROL [Concomitant]
     Active Substance: BUDESONIDE\FORMOTEROL
  9. CALCIUM CARBONATE [Concomitant]
     Active Substance: CALCIUM CARBONATE
  10. SIMVASTATIN [Concomitant]
     Active Substance: SIMVASTATIN
  11. VITAMIN B12 [Concomitant]
     Active Substance: CYANOCOBALAMIN
  12. VITAMIN D NOS [Concomitant]
     Active Substance: VITAMIN D NOS
  13. CARBAMIDE PEROXIDE [Concomitant]
     Active Substance: CARBAMIDE PEROXIDE
  14. FINASTERIDE [Concomitant]
     Active Substance: FINASTERIDE
  15. GUAIFENESIN [Concomitant]
     Active Substance: GUAIFENESIN
  16. LIDOCAINE\PRILOCAINE [Concomitant]
     Active Substance: LIDOCAINE\PRILOCAINE
  17. PROBIOTICS NOS [Concomitant]
     Active Substance: PROBIOTICS NOS
  18. DENOSUMAB [Concomitant]
     Active Substance: DENOSUMAB
  19. OMEPRAZOLE [Concomitant]
     Active Substance: OMEPRAZOLE
  20. DICLOFENAC SODIUM [Concomitant]
     Active Substance: DICLOFENAC SODIUM
  21. FLUDROCORTISONE [Concomitant]
     Active Substance: FLUDROCORTISONE
  22. ACYCLOVIR [Concomitant]
     Active Substance: ACYCLOVIR
  23. DOXYCYCLINE HYCLATE [Concomitant]
     Active Substance: DOXYCYCLINE HYCLATE

REACTIONS (2)
  - Asthenia [Recovered/Resolved]
  - Presyncope [Recovered/Resolved]

NARRATIVE: CASE EVENT DATE: 20230329
